FAERS Safety Report 18888021 (Version 1)
Quarter: 2021Q1

REPORT INFORMATION
  Report Type: Spontaneous
  Country: ES (occurrence: ES)
  Receive Date: 20210212
  Receipt Date: 20210212
  Transmission Date: 20210420
  Serious: Yes (Other)
  Sender: FDA-Public Use
  Company Number: ES-AMERICAN REGENT INC-2021000380

PATIENT
  Age: 78 Year
  Sex: Female

DRUGS (7)
  1. INSULIN GLARGINE [Concomitant]
     Active Substance: INSULIN GLARGINE
     Indication: HYPERGLYCAEMIA
     Dosage: UNK
     Route: 065
  2. FERINJECT [Suspect]
     Active Substance: FERRIC CARBOXYMALTOSE
     Indication: PRODUCT USED FOR UNKNOWN INDICATION
     Dosage: UNK
     Route: 042
  3. APIDRA SOLOSTAR [Concomitant]
     Active Substance: INSULIN GLULISINE
     Indication: TYPE 2 DIABETES MELLITUS
     Dosage: 0?6/8?6/8 IU, Q8H (1 IN 8 HR)
     Route: 058
  4. METFORMIN [Concomitant]
     Active Substance: METFORMIN HYDROCHLORIDE
     Indication: TYPE 2 DIABETES MELLITUS
     Dosage: UNK, QW (1 IN 1 WK)
     Route: 065
  5. DULAGLUTIDE. [Concomitant]
     Active Substance: DULAGLUTIDE
     Indication: WEIGHT INCREASED
     Dosage: UNK
     Route: 065
  6. VENOFER [Suspect]
     Active Substance: IRON SUCROSE
     Indication: PRODUCT USED FOR UNKNOWN INDICATION
     Dosage: UNK
     Route: 042
  7. INSULIN GLARGINE [Suspect]
     Active Substance: INSULIN GLARGINE
     Indication: TYPE 2 DIABETES MELLITUS
     Dosage: 18 IU, QD (18 IU, 1 IN 1 D)
     Route: 058

REACTIONS (13)
  - Hypertension [Unknown]
  - Hot flush [Unknown]
  - Intestinal infarction [Unknown]
  - Hyperglycaemia [Unknown]
  - Fear [Unknown]
  - Blood iron abnormal [Unknown]
  - Blood glucose increased [Unknown]
  - Dizziness [Unknown]
  - Intentional dose omission [Unknown]
  - Decreased appetite [Unknown]
  - Discomfort [Unknown]
  - Shoulder operation [Unknown]
  - Blood glucose decreased [Unknown]

NARRATIVE: CASE EVENT DATE: 20210113
